FAERS Safety Report 13653725 (Version 1)
Quarter: 2017Q2

REPORT INFORMATION
  Report Type: Report from Study
  Country: MA (occurrence: MA)
  Receive Date: 20170614
  Receipt Date: 20170614
  Transmission Date: 20170830
  Serious: Yes (Other)
  Sender: FDA-Public Use
  Company Number: MA-SYMPLMED PHARMACEUTICALS-2017SYMPLMED000458

PATIENT

DRUGS (1)
  1. PERINDOPRIL ARGININE/AMLODIPINE BESYLATE [Suspect]
     Active Substance: AMLODIPINE BESYLATE\PERINDOPRIL ARGININE
     Indication: PRODUCT USED FOR UNKNOWN INDICATION
     Dosage: UNK
     Route: 065
     Dates: end: 201607

REACTIONS (3)
  - Vertigo [Recovered/Resolved]
  - Dyspnoea exertional [Unknown]
  - Tachycardia [Unknown]

NARRATIVE: CASE EVENT DATE: 2016
